FAERS Safety Report 15067703 (Version 1)
Quarter: 2018Q2

REPORT INFORMATION
  Report Type: Spontaneous
  Country: CH (occurrence: CH)
  Receive Date: 20180626
  Receipt Date: 20180626
  Transmission Date: 20180711
  Serious: Yes (Hospitalization)
  Sender: FDA-Public Use
  Company Number: CH-OTSUKA-2018_016636

PATIENT
  Age: 45 Year
  Sex: Female

DRUGS (5)
  1. CIPRALEX [Suspect]
     Active Substance: ESCITALOPRAM OXALATE
     Indication: DEPRESSION
     Dosage: UNK
     Route: 065
  2. ABILIFY [Suspect]
     Active Substance: ARIPIPRAZOLE
     Indication: SCHIZOPHRENIA
     Dosage: 10 MG, QD
     Route: 048
     Dates: start: 2017, end: 2017
  3. SEQUASE [Concomitant]
     Active Substance: QUETIAPINE FUMARATE
     Dosage: 100 MG, UNK
     Route: 065
  4. OLANZAPINE. [Concomitant]
     Active Substance: OLANZAPINE
     Indication: SCHIZOPHRENIA
     Dosage: UNK
     Route: 065
     Dates: start: 2017
  5. SEQUASE [Concomitant]
     Active Substance: QUETIAPINE FUMARATE
     Indication: SLEEP DISORDER
     Dosage: UNK
     Route: 065

REACTIONS (8)
  - Condition aggravated [Unknown]
  - Impaired driving ability [Unknown]
  - Anxiety [Unknown]
  - Tinnitus [Recovered/Resolved]
  - Anhedonia [Unknown]
  - Extrapyramidal disorder [Unknown]
  - Therapy cessation [Unknown]
  - Fear [Unknown]

NARRATIVE: CASE EVENT DATE: 2017
